FAERS Safety Report 6815434-5 (Version None)
Quarter: 2010Q2

REPORT INFORMATION
  Report Type: 
  Country: None (occurrence: None)
  Receive Date: 20100629
  Receipt Date: 20100618
  Transmission Date: 20101027
  Serious: Yes (Disabling)
  Sender: FDA-Public Use
  Company Number: 2010SP030843

PATIENT
  Age: 35 Year
  Sex: Female

DRUGS (1)
  1. IMPLANON [Suspect]
     Indication: DRUG USE FOR UNKNOWN INDICATION
     Dosage: 1 DF;
     Dates: end: 20100618

REACTIONS (4)
  - IMPLANT SITE INDURATION [None]
  - IMPLANT SITE PAIN [None]
  - PERIPHERAL NERVE LESION [None]
  - TENDON DISORDER [None]
